FAERS Safety Report 8820031 (Version 1)
Quarter: 2012Q4

REPORT INFORMATION
  Report Type: 
  Country: AE (occurrence: AE)
  Receive Date: 20121001
  Receipt Date: 20121001
  Transmission Date: 20130627
  Serious: Yes (Other)
  Sender: FDA-Public Use
  Company Number: AE-ELI_LILLY_AND_COMPANY-AE201209006502

PATIENT
  Sex: Female

DRUGS (3)
  1. OLANZAPINE [Suspect]
     Indication: SCHIZOPHRENIA
     Dosage: 5 mg, qd
     Dates: start: 20120905, end: 20120907
  2. OLANZAPINE [Suspect]
     Dosage: 10 mg, qd
     Route: 048
     Dates: start: 20120906, end: 20120907
  3. LORAZEPAM [Concomitant]
     Indication: SCHIZOPHRENIA
     Dosage: 1 mg, UNK

REACTIONS (1)
  - Electrocardiogram QT prolonged [Recovered/Resolved]
